FAERS Safety Report 7203544-2 (Version None)
Quarter: 2010Q4

REPORT INFORMATION
  Report Type: 
  Country: None (occurrence: None)
  Receive Date: 20101230
  Receipt Date: 20101222
  Transmission Date: 20110411
  Serious: Yes (Other)
  Sender: FDA-Public Use
  Company Number: US-ASTELLAS-2010US005190

PATIENT

DRUGS (3)
  1. VESICARE [Suspect]
     Indication: PRODUCT USED FOR UNKNOWN INDICATION
     Dosage: UNK
     Route: 048
     Dates: start: 20090101
  2. VESICARE [Suspect]
     Dosage: UNK
     Route: 048
     Dates: start: 20101201
  3. TAMSULOSIN [Concomitant]
     Indication: BENIGN PROSTATIC HYPERPLASIA
     Dosage: UNK
     Route: 065

REACTIONS (5)
  - CEREBROVASCULAR ACCIDENT [None]
  - CONSTIPATION [None]
  - DRY MOUTH [None]
  - HEAT STROKE [None]
  - VISION BLURRED [None]
